FAERS Safety Report 6795019-X (Version None)
Quarter: 2010Q2

REPORT INFORMATION
  Report Type: 
  Country: None (occurrence: None)
  Receive Date: 20100625
  Receipt Date: 20100614
  Transmission Date: 20101027
  Serious: Yes (Hospitalization)
  Sender: FDA-Public Use
  Company Number: PHHY2010FR39255

PATIENT
  Age: 53 Year
  Sex: Female

DRUGS (3)
  1. IMATINIB [Suspect]
     Indication: CHRONIC MYELOID LEUKAEMIA
     Dosage: 400 MG, BID
  2. IMATINIB [Suspect]
     Dosage: 16,000 MG (40 TABLETS)
  3. LEVOTHYROXINE SODIUM [Concomitant]
     Indication: HYPOTHYROIDISM

REACTIONS (10)
  - ABDOMINAL PAIN [None]
  - BLOOD CREATININE INCREASED [None]
  - INTENTIONAL OVERDOSE [None]
  - MAJOR DEPRESSION [None]
  - MOOD ALTERED [None]
  - PSYCHOMOTOR RETARDATION [None]
  - SUICIDE ATTEMPT [None]
  - TROPONIN INCREASED [None]
  - VOMITING [None]
  - WHITE BLOOD CELL COUNT INCREASED [None]
